FAERS Safety Report 5491292-9 (Version None)
Quarter: 2007Q4

REPORT INFORMATION
  Report Type: 
  Country: None (occurrence: None)
  Receive Date: 20071019
  Receipt Date: 20071016
  Transmission Date: 20080405
  Serious: Yes (Hospitalization)
  Sender: FDA-Public Use
  Company Number: JP-ROXANE LABORATORIES, INC-2007-BP-22848RO

PATIENT
  Age: 56 Year
  Sex: Male

DRUGS (3)
  1. PAROXETINE [Suspect]
     Indication: DEPRESSED MOOD
  2. LEVOTHYROXINE SODIUM [Suspect]
     Indication: AUTOIMMUNE THYROIDITIS
  3. MILNACIPRANE [Concomitant]
     Indication: MAJOR DEPRESSION

REACTIONS (2)
  - DRUG INEFFECTIVE [None]
  - HYPOTHYROIDISM [None]
